FAERS Safety Report 6676132-4 (Version None)
Quarter: 2010Q2

REPORT INFORMATION
  Report Type: 
  Country: None (occurrence: None)
  Receive Date: 20100412
  Receipt Date: 20100331
  Transmission Date: 20101027
  Serious: Yes (Other)
  Sender: FDA-Public Use
  Company Number: GB-PFIZER INC-2010041549

PATIENT
  Age: 67 Year
  Sex: Male

DRUGS (3)
  1. SUTENT [Suspect]
     Dosage: 37.5 MG, UNK
     Dates: start: 20060101
  2. SUTENT [Suspect]
     Dosage: 25 MG, UNK
  3. ZOLEDRONIC ACID [Concomitant]

REACTIONS (1)
  - OSTEONECROSIS [None]
